FAERS Safety Report 4496834-8 (Version None)
Quarter: 2004Q4

REPORT INFORMATION
  Report Type: 
  Country: None (occurrence: None)
  Receive Date: 20041109
  Receipt Date: 20041027
  Transmission Date: 20050328
  Serious: Yes (Hospitalization)
  Sender: FDA-Public Use
  Company Number: CA-GLAXOSMITHKLINE-A0532350A

PATIENT
  Age: 73 Year
  Sex: Female

DRUGS (1)
  1. LEUKERAN [Suspect]
     Route: 048

REACTIONS (7)
  - BURNING SENSATION [None]
  - DERMATITIS BULLOUS [None]
  - ERYTHEMA [None]
  - INFLAMMATION [None]
  - INFLAMMATION LOCALISED [None]
  - PRURITUS [None]
  - RASH VESICULAR [None]
